FAERS Safety Report 4592571-X (Version None)
Quarter: 2005Q1

REPORT INFORMATION
  Report Type: 
  Country: None (occurrence: None)
  Receive Date: 20050222
  Receipt Date: 20050207
  Transmission Date: 20050727
  Serious: Yes (Disabling)
  Sender: FDA-Public Use
  Company Number: 2004GB02350

PATIENT
  Age: 30 Year
  Sex: Female
  Weight: 68.7 kg

DRUGS (4)
  1. CRESTOR [Suspect]
     Indication: TYPE IIA HYPERLIPIDAEMIA
     Dosage: 10 MG DAILY PO
     Route: 048
     Dates: start: 20031101
  2. CRESTOR [Suspect]
     Indication: TYPE IIA HYPERLIPIDAEMIA
     Dosage: 10 MG DAILY PO
     Route: 048
     Dates: start: 20040908, end: 20040917
  3. ASPIRIN [Concomitant]
  4. ATENOLOL [Concomitant]

REACTIONS (4)
  - BLOOD CREATINE PHOSPHOKINASE INCREASED [None]
  - DEMYELINATION [None]
  - NEUROPATHY PERIPHERAL [None]
  - SPINAL CORD DISORDER [None]
